FAERS Safety Report 17088895 (Version 2)
Quarter: 2019Q4

REPORT INFORMATION
  Report Type: Report from Study
  Country: CA (occurrence: CA)
  Receive Date: 20191128
  Receipt Date: 20191206
  Transmission Date: 20200122
  Serious: Yes (Death, Hospitalization)
  Sender: FDA-Public Use
  Company Number: CA-HLSUS-2019-CA-001649

PATIENT
  Age: 67 Year
  Sex: Female

DRUGS (3)
  1. CLOZARIL [Suspect]
     Active Substance: CLOZAPINE
     Dosage: 500MG
     Route: 048
     Dates: start: 20000125
  2. SALBUTAMOL [Concomitant]
     Active Substance: ALBUTEROL
     Dosage: 100 MCG, 2 PUFFS Q4H
  3. ENOXAPARIN [Concomitant]
     Active Substance: ENOXAPARIN
     Dosage: 40MG DAILY
     Route: 058

REACTIONS (2)
  - Cardiac failure congestive [Unknown]
  - Cardiac arrest [Fatal]

NARRATIVE: CASE EVENT DATE: 20190909
